FAERS Safety Report 6506279-4 (Version None)
Quarter: 2009Q4

REPORT INFORMATION
  Report Type: 
  Country: None (occurrence: None)
  Receive Date: 20091218
  Receipt Date: 20091207
  Transmission Date: 20100525
  Serious: Yes (Life-Threatening)
  Sender: FDA-Public Use
  Company Number: PL-SANOFI-AVENTIS-A01200910370

PATIENT
  Age: 67 Year
  Weight: 80 kg

DRUGS (3)
  1. OXALIPLATIN [Suspect]
     Route: 042
     Dates: start: 20091006, end: 20091006
  2. ONDANSETRON [Concomitant]
  3. DEXAVEN [Concomitant]
     Route: 042

REACTIONS (5)
  - BLOOD PRESSURE DECREASED [None]
  - SHOCK [None]
  - STRIDOR [None]
  - SYNCOPE [None]
  - TACHYCARDIA [None]
